FAERS Safety Report 25622985 (Version 1)
Quarter: 2025Q3

REPORT INFORMATION
  Report Type: Spontaneous
  Country: CN (occurrence: CN)
  Receive Date: 20250730
  Receipt Date: 20250730
  Transmission Date: 20251020
  Serious: Yes (Life-Threatening)
  Sender: DR REDDYS
  Company Number: None

PATIENT
  Age: 63 Year
  Sex: Female

DRUGS (20)
  1. DOXORUBICIN [Suspect]
     Active Substance: DOXORUBICIN
     Indication: Non-Hodgkin^s lymphoma stage IV
     Dates: end: 202406
  2. DOXORUBICIN [Suspect]
     Active Substance: DOXORUBICIN
     Indication: Metastases to lymph nodes
  3. DOXORUBICIN [Suspect]
     Active Substance: DOXORUBICIN
     Indication: Metastases to heart
  4. DOXORUBICIN [Suspect]
     Active Substance: DOXORUBICIN
     Indication: Metastases to ovary
  5. PREDNISONE [Concomitant]
     Active Substance: PREDNISONE
     Indication: Non-Hodgkin^s lymphoma stage IV
     Dates: start: 20240621, end: 202406
  6. PREDNISONE [Concomitant]
     Active Substance: PREDNISONE
     Indication: Metastases to lymph nodes
  7. PREDNISONE [Concomitant]
     Active Substance: PREDNISONE
     Indication: Metastases to heart
  8. PREDNISONE [Concomitant]
     Active Substance: PREDNISONE
     Indication: Metastases to ovary
  9. VINCRISTINE [Concomitant]
     Active Substance: VINCRISTINE
     Indication: Non-Hodgkin^s lymphoma stage IV
     Dates: start: 20240621, end: 202406
  10. VINCRISTINE [Concomitant]
     Active Substance: VINCRISTINE
     Indication: Metastases to lymph nodes
  11. VINCRISTINE [Concomitant]
     Active Substance: VINCRISTINE
     Indication: Metastases to heart
  12. VINCRISTINE [Concomitant]
     Active Substance: VINCRISTINE
     Indication: Metastases to ovary
  13. CYCLOPHOSPHAMIDE [Concomitant]
     Active Substance: CYCLOPHOSPHAMIDE
     Indication: Non-Hodgkin^s lymphoma stage IV
     Dates: start: 20240621, end: 202406
  14. CYCLOPHOSPHAMIDE [Concomitant]
     Active Substance: CYCLOPHOSPHAMIDE
     Indication: Metastases to lymph nodes
  15. CYCLOPHOSPHAMIDE [Concomitant]
     Active Substance: CYCLOPHOSPHAMIDE
     Indication: Metastases to heart
  16. CYCLOPHOSPHAMIDE [Concomitant]
     Active Substance: CYCLOPHOSPHAMIDE
     Indication: Metastases to ovary
  17. RITUXIMAB [Concomitant]
     Active Substance: RITUXIMAB
     Indication: Non-Hodgkin^s lymphoma stage IV
     Dates: start: 20240621, end: 202406
  18. RITUXIMAB [Concomitant]
     Active Substance: RITUXIMAB
     Indication: Metastases to lymph nodes
  19. RITUXIMAB [Concomitant]
     Active Substance: RITUXIMAB
     Indication: Metastases to heart
  20. RITUXIMAB [Concomitant]
     Active Substance: RITUXIMAB
     Indication: Metastases to ovary

REACTIONS (5)
  - Electrocardiogram QT prolonged [Recovering/Resolving]
  - Heart rate decreased [Recovering/Resolving]
  - Arrhythmia [Recovering/Resolving]
  - Electrocardiogram T wave inversion [Recovering/Resolving]
  - N-terminal prohormone brain natriuretic peptide increased [Recovering/Resolving]

NARRATIVE: CASE EVENT DATE: 20240601
